FAERS Safety Report 6802076-0 (Version None)
Quarter: 2010Q2

REPORT INFORMATION
  Report Type: 
  Country: None (occurrence: None)
  Receive Date: 20100629
  Receipt Date: 20071024
  Transmission Date: 20101027
  Serious: No
  Sender: FDA-Public Use
  Company Number: US-PFIZER INC-2007072953

PATIENT
  Sex: Male
  Weight: 72.6 kg

DRUGS (12)
  1. VIAGRA [Suspect]
     Indication: ERECTILE DYSFUNCTION
     Route: 048
     Dates: start: 20070401
  2. CALCIUM CARBONATE [Concomitant]
  3. GERITOL [Concomitant]
  4. CENTRUM [Concomitant]
  5. VITAMIN C [Concomitant]
  6. GLIPIZIDE [Concomitant]
  7. METOPROLOL [Concomitant]
  8. COLCHICINE [Concomitant]
  9. COZAAR [Concomitant]
  10. METFORMIN HCL [Concomitant]
  11. LOVASTATIN [Concomitant]
  12. WARFARIN [Concomitant]

REACTIONS (1)
  - DRUG INEFFECTIVE [None]
